FAERS Safety Report 16021808 (Version 1)
Quarter: 2019Q1

REPORT INFORMATION
  Report Type: Spontaneous
  Country: US (occurrence: US)
  Receive Date: 20190301
  Receipt Date: 20190301
  Transmission Date: 20190418
  Serious: No
  Sender: FDA-Public Use
  Company Number: US-BIOGEN-2019BI00701901

PATIENT
  Age: 1 Year
  Sex: Male

DRUGS (1)
  1. TECFIDERA [Suspect]
     Active Substance: DIMETHYL FUMARATE
     Indication: ACCIDENTAL EXPOSURE TO PRODUCT
     Dates: start: 20190220, end: 20190220

REACTIONS (2)
  - Accidental exposure to product by child [Unknown]
  - Flushing [Unknown]

NARRATIVE: CASE EVENT DATE: 20190220
